FAERS Safety Report 12400520 (Version 2)
Quarter: 2016Q2

REPORT INFORMATION
  Report Type: Spontaneous
  Country: US (occurrence: US)
  Receive Date: 20160525
  Receipt Date: 20160525
  Transmission Date: 20160815
  Serious: No
  Sender: FDA-Public Use
  Company Number: US-SA-2015SA078181

PATIENT
  Age: 74 Year
  Sex: Male

DRUGS (2)
  1. SOLOSTAR [Concomitant]
     Active Substance: DEVICE
  2. LANTUS SOLOSTAR [Suspect]
     Active Substance: INSULIN GLARGINE
     Indication: TYPE 1 DIABETES MELLITUS
     Dosage: DOSE AND DAILY DOSE: 22-25 UNITS
     Route: 065

REACTIONS (4)
  - Blood glucose increased [Unknown]
  - Visual impairment [Unknown]
  - Condition aggravated [Unknown]
  - Drug effect decreased [Unknown]
